FAERS Safety Report 17119527 (Version 1)
Quarter: 2019Q4

REPORT INFORMATION
  Report Type: Spontaneous
  Country: ES (occurrence: ES)
  Receive Date: 20191206
  Receipt Date: 20191206
  Transmission Date: 20200122
  Serious: Yes (Life-Threatening, Hospitalization)
  Sender: FDA-Public Use
  Company Number: ES-B.I. PHARMACEUTICALS,INC./RIDGEFIELD-2019-12-117811

PATIENT
  Age: 51 Year
  Sex: Male

DRUGS (5)
  1. METFORMINA [METFORMIN] [Concomitant]
     Active Substance: METFORMIN HYDROCHLORIDE
     Indication: TYPE 2 DIABETES MELLITUS
     Dosage: 1-0-1 || DOSIS UNIDAD FRECUENCIA: 1700 MG-MILIGRAMOS || DOSIS POR TOMA: 850 MG-MILIGRAMOS || N? T...
     Route: 048
     Dates: start: 2009
  2. ENALAPRIL [Concomitant]
     Active Substance: ENALAPRIL
     Indication: HYPERTENSION
     Dosage: 1-0-0 || DOSIS UNIDAD FRECUENCIA: 20 MG-MILIGRAMOS || DOSIS POR TOMA: 20 MG-MILIGRAMOS || N? TOMA...
     Route: 048
     Dates: start: 2009
  3. VIRAMUNE [Suspect]
     Active Substance: NEVIRAPINE
     Indication: ACQUIRED IMMUNODEFICIENCY SYNDROME
     Dosage: 1-0-1 || DOSIS UNIDAD FRECUENCIA: 400 MG-MILIGRAMOS || DOSIS POR TOMA: 200 MG-MILIGRAMOS || N? TO...
     Route: 048
     Dates: start: 20140202, end: 20140320
  4. LAMIVUDINA [Suspect]
     Active Substance: LAMIVUDINE
     Indication: ACQUIRED IMMUNODEFICIENCY SYNDROME
     Dosage: 150MG/12H
     Route: 048
     Dates: start: 20140202, end: 20140320
  5. ESTAVUDINA [Suspect]
     Active Substance: STAVUDINE
     Indication: ACQUIRED IMMUNODEFICIENCY SYNDROME
     Dosage: || UNIDAD DE FRECUENCIA: 0 DIA
     Route: 048
     Dates: start: 20140202, end: 20140320

REACTIONS (5)
  - Pyrexia [Recovering/Resolving]
  - Rash [Recovering/Resolving]
  - Drug reaction with eosinophilia and systemic symptoms [Recovering/Resolving]
  - Hepatic failure [Not Recovered/Not Resolved]
  - Acute kidney injury [Recovering/Resolving]

NARRATIVE: CASE EVENT DATE: 20140313
